FAERS Safety Report 21330027 (Version 1)
Quarter: 2022Q3

REPORT INFORMATION
  Report Type: Spontaneous
  Country: CN (occurrence: CN)
  Receive Date: 20220913
  Receipt Date: 20220913
  Transmission Date: 20221027
  Serious: Yes (Hospitalization, Other)
  Sender: FDA-Public Use
  Company Number: CN-009507513-2209CHN003598

PATIENT
  Age: 57 Year
  Sex: Male
  Weight: 62.5 kg

DRUGS (6)
  1. KEYTRUDA [Suspect]
     Active Substance: PEMBROLIZUMAB
     Indication: Neoplasm
     Dosage: 200 MILLIGRAM, ONCE
     Dates: start: 20220812, end: 20220812
  2. NEDAPLATIN [Suspect]
     Active Substance: NEDAPLATIN
     Indication: Neoplasm
     Dosage: 40 MILLIGRAM, QD
     Route: 041
     Dates: start: 20220809, end: 20220811
  3. PACLITAXEL [Suspect]
     Active Substance: PACLITAXEL
     Indication: Neoplasm
     Dosage: 160 MILLIGRAM, QD
     Route: 041
     Dates: start: 20220809, end: 20220809
  4. SODIUM CHLORIDE [Concomitant]
     Active Substance: SODIUM CHLORIDE
     Dosage: 100 MILLILITER, QD
     Route: 041
     Dates: start: 20220809, end: 20220809
  5. SODIUM CHLORIDE [Concomitant]
     Active Substance: SODIUM CHLORIDE
     Dosage: 500 MILLILITER, QD
     Route: 041
     Dates: start: 20220809, end: 20220811
  6. SODIUM CHLORIDE [Concomitant]
     Active Substance: SODIUM CHLORIDE
     Dosage: 100 MILLILITER, QD
     Route: 041
     Dates: start: 20220812, end: 20220812

REACTIONS (3)
  - Aspartate aminotransferase abnormal [Recovering/Resolving]
  - Alanine aminotransferase abnormal [Recovering/Resolving]
  - Drug-induced liver injury [Not Recovered/Not Resolved]

NARRATIVE: CASE EVENT DATE: 20220816
